FAERS Safety Report 8760686 (Version 2)
Quarter: 2012Q4

REPORT INFORMATION
  Report Type: 
  Country: US (occurrence: US)
  Receive Date: 20120830
  Receipt Date: 20121009
  Transmission Date: 20130627
  Serious: No
  Sender: FDA-Public Use
  Company Number: US-TEVA-355636USA

PATIENT
  Sex: Female

DRUGS (2)
  1. NUVIGIL [Suspect]
     Indication: FIBROMYALGIA
     Route: 048
     Dates: start: 20120501, end: 2012
  2. NUVIGIL [Suspect]
     Route: 048

REACTIONS (2)
  - Insomnia [Unknown]
  - Drug dose omission [Unknown]
